FAERS Safety Report 6724109-2 (Version None)
Quarter: 2010Q2

REPORT INFORMATION
  Report Type: 
  Country: None (occurrence: None)
  Receive Date: 20100513
  Receipt Date: 20100506
  Transmission Date: 20101027
  Serious: Yes (Other)
  Sender: FDA-Public Use
  Company Number: GB-ROCHE-701748

PATIENT
  Age: 52 Year
  Sex: Female
  Weight: 97 kg

DRUGS (5)
  1. ORLISTAT [Suspect]
     Route: 048
     Dates: start: 20100302, end: 20100412
  2. DOMPERIDONE [Concomitant]
     Indication: OESOPHAGITIS
     Route: 048
     Dates: start: 20080116
  3. PIZOTIFEN [Concomitant]
     Route: 065
     Dates: start: 20050327
  4. PROPRANOLOL [Concomitant]
     Indication: DIZZINESS
     Route: 048
     Dates: start: 20090401
  5. SIMVASTATIN [Concomitant]
     Indication: HYPERLIPIDAEMIA
     Route: 048
     Dates: start: 20080203

REACTIONS (2)
  - RECTAL DISCHARGE [None]
  - RECTAL HAEMORRHAGE [None]
